FAERS Safety Report 7677808-2 (Version None)
Quarter: 2011Q3

REPORT INFORMATION
  Report Type: 
  Country: None (occurrence: None)
  Receive Date: 20110811
  Receipt Date: 20110801
  Transmission Date: 20111222
  Serious: Yes (Hospitalization)
  Sender: FDA-Public Use
  Company Number: US-JNJFOC-20070805534

PATIENT
  Sex: Male
  Weight: 25.7 kg

DRUGS (8)
  1. INFLIXIMAB [Suspect]
     Dosage: 2 DOSES ON UNKNOWN DATES
     Route: 042
     Dates: start: 20070328
  2. INFLIXIMAB [Suspect]
     Indication: INFLAMMATORY BOWEL DISEASE
     Dosage: 3RD DOSE
     Route: 042
     Dates: start: 20070509
  3. FERROUS SULFATE TAB [Concomitant]
  4. MERCAPTOPURINE [Concomitant]
  5. MESALAMINE [Concomitant]
  6. INFLIXIMAB [Suspect]
     Route: 042
     Dates: start: 20070601
  7. PREDNISONE [Concomitant]
     Dosage: 30 MG DAILY FOR ONE WEEK THEN TAPER DOSE
  8. ZANTAC [Concomitant]

REACTIONS (1)
  - COLITIS [None]
